FAERS Safety Report 6715279-0 (Version None)
Quarter: 2010Q2

REPORT INFORMATION
  Report Type: 
  Country: None (occurrence: None)
  Receive Date: 20100506
  Receipt Date: 20100506
  Transmission Date: 20101027
  Serious: Yes (Disabling)
  Sender: FDA-Public Use
  Company Number: None

PATIENT
  Age: 73 Year
  Sex: Female
  Weight: 85.7298 kg

DRUGS (1)
  1. DETROL LA [Suspect]
     Indication: URINARY INCONTINENCE
     Dosage: 1 PER DAY DAILY MOUTH
     Route: 048
     Dates: start: 20090809, end: 20090930

REACTIONS (7)
  - AMNESIA [None]
  - ANXIETY [None]
  - COGNITIVE DISORDER [None]
  - DISORIENTATION [None]
  - DRY MOUTH [None]
  - SPEECH DISORDER [None]
  - THROAT IRRITATION [None]
